FAERS Safety Report 8372044-9 (Version None)
Quarter: 2012Q2

REPORT INFORMATION
  Report Type: 
  Country: None (occurrence: None)
  Receive Date: 20120520
  Receipt Date: 20120514
  Transmission Date: 20120825
  Serious: Yes (Other)
  Sender: FDA-Public Use
  Company Number: PHHY2011DE51448

PATIENT
  Sex: Female
  Weight: 62 kg

DRUGS (8)
  1. SOLIAN [Concomitant]
     Dosage: UNK UKN, UNK
  2. GASTROZEPIN [Concomitant]
  3. CLOZAPINE [Suspect]
     Route: 048
     Dates: start: 20110101
  4. RISPERDAL [Suspect]
     Dosage: UNK UKN, UNK
  5. FLUOXETINE [Suspect]
     Dosage: UNK UKN, UNK
  6. LORAZEPAM [Suspect]
     Dosage: UNK UKN, UNK
  7. ISOTREXIN [Concomitant]
     Dosage: UNK UKN, UNK
  8. DUAC [Concomitant]
     Dosage: UNK UKN, UNK

REACTIONS (3)
  - LIVER FUNCTION TEST ABNORMAL [None]
  - WEIGHT INCREASED [None]
  - ACNE [None]
